FAERS Safety Report 7125461-9 (Version None)
Quarter: 2010Q4

REPORT INFORMATION
  Report Type: 
  Country: None (occurrence: None)
  Receive Date: 20101129
  Receipt Date: 20100716
  Transmission Date: 20110411
  Serious: Yes (Other)
  Sender: FDA-Public Use
  Company Number: US-MYLANLABS-2010S1013021

PATIENT
  Age: 54 Year
  Sex: Female
  Weight: 86.18 kg

DRUGS (3)
  1. ALPRAZOLAM [Suspect]
     Indication: PANIC DISORDER
     Route: 048
     Dates: start: 20100101, end: 20100101
  2. ZOLOFT [Concomitant]
  3. ACETYLSALICYLIC ACID [Concomitant]

REACTIONS (1)
  - DRUG WITHDRAWAL SYNDROME [None]
